FAERS Safety Report 10538732 (Version 1)
Quarter: 2014Q4

REPORT INFORMATION
  Report Type: Report from Study
  Country: ES (occurrence: ES)
  Receive Date: 20141023
  Receipt Date: 20141023
  Transmission Date: 20150529
  Serious: Yes (Other)
  Sender: FDA-Public Use
  Company Number: ES-BAXTER-2014BAX063835

PATIENT
  Sex: Female

DRUGS (2)
  1. TRIPTORELIN [Suspect]
     Active Substance: TRIPTORELIN
     Indication: PROPHYLAXIS
     Dosage: FROM THE FIRST THROUGH THE LAST PULSE
     Route: 042
  2. GENOXAL [Suspect]
     Active Substance: CYCLOPHOSPHAMIDE
     Indication: SYSTEMIC LUPUS ERYTHEMATOSUS
     Dosage: 0.5-1 G/M2 EVERY 3-4 WEEKS FOR 6-9 PULSES
     Route: 042

REACTIONS (1)
  - Dysmenorrhoea [Unknown]
